FAERS Safety Report 9318228 (Version 1)
Quarter: 2013Q2

REPORT INFORMATION
  Report Type: Spontaneous
  Country: US (occurrence: US)
  Receive Date: 20130530
  Receipt Date: 20130530
  Transmission Date: 20140414
  Serious: No
  Sender: FDA-Public Use
  Company Number: US-GLAXOSMITHKLINE-A1008841A

PATIENT
  Age: 68 Year
  Sex: Male

DRUGS (8)
  1. VENTOLIN [Suspect]
     Indication: ASTHMA
     Dosage: 2SPR AS REQUIRED
     Route: 055
     Dates: start: 20121107, end: 20130115
  2. METOPROLOL TARTRATE [Concomitant]
  3. LISINOPRIL [Concomitant]
  4. LASIX [Concomitant]
  5. THYROXINE [Concomitant]
  6. AMLODIPINE [Concomitant]
  7. MULTIVITAMIN [Concomitant]
  8. ASPIRIN [Concomitant]

REACTIONS (5)
  - Dyspnoea [Unknown]
  - Heart rate irregular [Unknown]
  - Palpitations [Unknown]
  - Dyspnoea [Unknown]
  - Product quality issue [Unknown]
